FAERS Safety Report 6759356-7 (Version None)
Quarter: 2010Q2

REPORT INFORMATION
  Report Type: 
  Country: None (occurrence: None)
  Receive Date: 20100607
  Receipt Date: 20100524
  Transmission Date: 20101027
  Serious: Yes (Other)
  Sender: FDA-Public Use
  Company Number: US-ELI_LILLY_AND_COMPANY-US201005006256

PATIENT
  Sex: Female
  Weight: 64.989 kg

DRUGS (8)
  1. CYMBALTA [Suspect]
     Indication: FIBROMYALGIA
     Dosage: UNK, DAILY (1/D)
     Route: 048
  2. LYRICA [Concomitant]
     Indication: FIBROMYALGIA
  3. NEURONTIN [Concomitant]
     Indication: NEUROPATHY PERIPHERAL
  4. ZOLOFT [Concomitant]
     Dosage: 100 MG, DAILY (1/D)
  5. VALSARTAN [Concomitant]
  6. NAPROSYN [Concomitant]
     Indication: NEUROPATHY PERIPHERAL
  7. PREMARIN [Concomitant]
     Indication: HYSTERECTOMY
     Dosage: 0.9 MG, DAILY (1/D)
  8. AMBIEN [Concomitant]
     Indication: SLEEP DISORDER
     Dosage: UNK, DAILY (1/D)
     Route: 048

REACTIONS (6)
  - ANKLE FRACTURE [None]
  - ANXIETY [None]
  - NEUROPATHY PERIPHERAL [None]
  - PAIN IN EXTREMITY [None]
  - RHEUMATOID FACTOR INCREASED [None]
  - SUICIDAL IDEATION [None]
